FAERS Safety Report 8985772 (Version 1)
Quarter: 2012Q4

REPORT INFORMATION
  Report Type: 
  Country: BR (occurrence: BR)
  Receive Date: 20121226
  Receipt Date: 20121226
  Transmission Date: 20130627
  Serious: Yes (Other)
  Sender: FDA-Public Use
  Company Number: BR-ELI_LILLY_AND_COMPANY-BR201212004979

PATIENT
  Age: 71 Year
  Sex: Female

DRUGS (1)
  1. FORTEO [Suspect]
     Indication: BONE DISORDER
     Dosage: UNK, qd
     Route: 065

REACTIONS (5)
  - Cerebrovascular accident [Unknown]
  - Influenza [Unknown]
  - Arthralgia [Unknown]
  - Pain in extremity [Unknown]
  - Toxicity to various agents [Unknown]
